FAERS Safety Report 18448824 (Version 1)
Quarter: 2020Q4

REPORT INFORMATION
  Report Type: Spontaneous
  Country: US (occurrence: US)
  Receive Date: 20201030
  Receipt Date: 20201030
  Transmission Date: 20210114
  Serious: Yes (Hospitalization)
  Sender: FDA-Public Use
  Company Number: US-MYLANLABS-2020M1090798

PATIENT
  Age: 61 Year
  Sex: Male

DRUGS (1)
  1. MYCOPHENOLATE MOFETIL. [Suspect]
     Active Substance: MYCOPHENOLATE MOFETIL
     Indication: URTICARIAL VASCULITIS
     Route: 065

REACTIONS (5)
  - Pseudomonas infection [Unknown]
  - Lactic acidosis [Unknown]
  - Pneumonia [Recovering/Resolving]
  - Pasteurella infection [Unknown]
  - Hypoxia [Recovering/Resolving]
